FAERS Safety Report 6999227-4 (Version None)
Quarter: 2010Q3

REPORT INFORMATION
  Report Type: 
  Country: None (occurrence: None)
  Receive Date: 20100920
  Receipt Date: 20100302
  Transmission Date: 20110219
  Serious: No
  Sender: FDA-Public Use
  Company Number: US-ASTRAZENECA-2010SE09099

PATIENT
  Age: 33 Year
  Sex: Female

DRUGS (16)
  1. SEROQUEL [Suspect]
     Indication: ANXIETY
     Route: 048
  2. SEROQUEL [Suspect]
     Indication: SLEEP DISORDER
     Route: 048
  3. SEROQUEL [Suspect]
     Route: 048
  4. SEROQUEL [Suspect]
     Route: 048
  5. SEROQUEL [Suspect]
     Route: 048
  6. SEROQUEL [Suspect]
     Route: 048
  7. SEROQUEL [Suspect]
     Route: 048
     Dates: start: 20100227
  8. SEROQUEL [Suspect]
     Route: 048
     Dates: start: 20100227
  9. HYDROXIZINE [Concomitant]
  10. NEURONTIN [Concomitant]
  11. IBUPROFEN [Concomitant]
  12. SMV-TMV BACTRIM [Concomitant]
  13. THORAZINE [Concomitant]
  14. LORATADINE [Concomitant]
  15. DOXYCYCLINE [Concomitant]
  16. STRATTERA [Concomitant]

REACTIONS (1)
  - DRUG SCREEN POSITIVE [None]
